FAERS Safety Report 24535945 (Version 2)
Quarter: 2024Q4

REPORT INFORMATION
  Report Type: Spontaneous
  Country: US (occurrence: US)
  Receive Date: 20241022
  Receipt Date: 20241026
  Transmission Date: 20250114
  Serious: Yes (Disabling)
  Sender: ABBVIE
  Company Number: US-ABBVIE-5973130

PATIENT
  Sex: Female
  Weight: 54 kg

DRUGS (3)
  1. QULIPTA [Suspect]
     Active Substance: ATOGEPANT
     Indication: Migraine
     Route: 048
     Dates: start: 202407, end: 20241014
  2. QULIPTA [Suspect]
     Active Substance: ATOGEPANT
     Indication: Migraine
     Route: 048
     Dates: start: 20241015
  3. TOPAMAX [Concomitant]
     Active Substance: TOPIRAMATE
     Indication: Migraine

REACTIONS (4)
  - Disability [Unknown]
  - Dizziness [Recovering/Resolving]
  - Off label use [Unknown]
  - Vertigo [Unknown]

NARRATIVE: CASE EVENT DATE: 20240101
